FAERS Safety Report 25398647 (Version 4)
Quarter: 2025Q4

REPORT INFORMATION
  Report Type: Spontaneous
  Country: US (occurrence: US)
  Receive Date: 20250604
  Receipt Date: 20251024
  Transmission Date: 20260119
  Serious: No
  Sender: MALLINCKRODT
  Company Number: US-MALLINCKRODT-MNK202502980

PATIENT
  Age: 49 Year
  Sex: Female

DRUGS (15)
  1. CORTICOTROPIN [Suspect]
     Active Substance: CORTICOTROPIN
     Indication: Multiple sclerosis
     Route: 058
  2. CORTICOTROPIN [Suspect]
     Active Substance: CORTICOTROPIN
     Indication: Illness
     Dosage: 80 UNITS
     Route: 058
  3. OCREVUS [Concomitant]
     Active Substance: OCRELIZUMAB
     Dosage: UNKNOWN
  4. BOTOX [Concomitant]
     Active Substance: ONABOTULINUMTOXINA
     Dosage: UNKNOWN
  5. LEVOTHYROXINE [Concomitant]
     Active Substance: LEVOTHYROXINE
     Dosage: UNKNOWN
  6. GARLIC [Concomitant]
     Active Substance: GARLIC
     Dosage: UNKNOWN
  7. CO Q 10 [UBIDECARENONE] [Concomitant]
     Dosage: UNKNOWN
  8. CALCIUM [Concomitant]
     Active Substance: CALCIUM
     Dosage: UNKNOWN
  9. VITAMIN D3 [Concomitant]
     Active Substance: CHOLECALCIFEROL
     Dosage: UNKNOWN
  10. CYANOCOBALAMIN [Concomitant]
     Active Substance: CYANOCOBALAMIN
     Dosage: UNKNOWN
  11. COZAAR [Concomitant]
     Active Substance: LOSARTAN POTASSIUM
     Dosage: UNKNOWN
  12. COPAXONE [Concomitant]
     Active Substance: GLATIRAMER ACETATE
     Dosage: UNKNOWN
  13. HERBALS\TURMERIC [Concomitant]
     Active Substance: HERBALS\TURMERIC
     Dosage: UNKNOWN
  14. KESIMPTA [Concomitant]
     Active Substance: OFATUMUMAB
     Dosage: UNKNOWN
  15. CALCIUM\CHOLECALCIFEROL [Concomitant]
     Active Substance: CALCIUM\CHOLECALCIFEROL
     Dosage: UNKNOWN

REACTIONS (4)
  - General physical health deterioration [Unknown]
  - Brain fog [Unknown]
  - Malaise [Unknown]
  - Drug ineffective [Unknown]

NARRATIVE: CASE EVENT DATE: 20250602
